FAERS Safety Report 26117304 (Version 1)
Quarter: 2025Q4

REPORT INFORMATION
  Report Type: Spontaneous
  Country: CN (occurrence: CN)
  Receive Date: 20251203
  Receipt Date: 20251203
  Transmission Date: 20260118
  Serious: Yes (Hospitalization)
  Sender: BEIGENE
  Company Number: CN-BEONEMEDICINES-BGN-2025-021006

PATIENT
  Age: 78 Year
  Sex: Male
  Weight: 56 kg

DRUGS (6)
  1. TISLELIZUMAB [Suspect]
     Active Substance: TISLELIZUMAB
     Indication: Laryngeal cancer
     Dosage: 200 MILLIGRAM, Q3WK VD D1
     Dates: start: 20251108
  2. TISLELIZUMAB [Suspect]
     Active Substance: TISLELIZUMAB
     Dosage: 200 MILLIGRAM, Q3WK VD D1
     Route: 041
     Dates: start: 20251108
  3. TISLELIZUMAB [Suspect]
     Active Substance: TISLELIZUMAB
     Dosage: 200 MILLIGRAM, Q3WK VD D1
     Route: 041
     Dates: start: 20251108
  4. TISLELIZUMAB [Suspect]
     Active Substance: TISLELIZUMAB
     Dosage: 200 MILLIGRAM, Q3WK VD D1
     Dates: start: 20251108
  5. PACLITAXEL [Concomitant]
     Active Substance: PACLITAXEL
     Indication: Laryngeal cancer
     Dosage: 270 MILLIGRAM VD Q3WK D1
     Dates: start: 20251108
  6. CISPLATIN [Concomitant]
     Active Substance: CISPLATIN
     Indication: Laryngeal cancer
     Dosage: 30 MILLIGRAM, Q3WK VD D1-3
     Dates: start: 20251108

REACTIONS (2)
  - Myelosuppression [Recovering/Resolving]
  - Pyrexia [Unknown]

NARRATIVE: CASE EVENT DATE: 20251115
